FAERS Safety Report 9451529 (Version 1)
Quarter: 2013Q3

REPORT INFORMATION
  Report Type: Spontaneous
  Country: GB (occurrence: GB)
  Receive Date: 20130811
  Receipt Date: 20130811
  Transmission Date: 20140515
  Serious: Yes (Other)
  Sender: FDA-Public Use
  Company Number: GB-MYLANLABS-2013S1016729

PATIENT
  Age: 16 Year
  Sex: Male
  Weight: 73.47 kg

DRUGS (1)
  1. MINOCYCLINE [Suspect]
     Indication: ACNE
     Route: 048

REACTIONS (10)
  - Chest discomfort [Unknown]
  - Dyspepsia [Unknown]
  - Inflammatory marker increased [Unknown]
  - Arthralgia [Recovering/Resolving]
  - Lip swelling [Recovering/Resolving]
  - Myalgia [Unknown]
  - Rash [Unknown]
  - Local swelling [Recovering/Resolving]
  - Eyelid oedema [Unknown]
  - Urticaria [Recovering/Resolving]
